FAERS Safety Report 8089100-5 (Version None)
Quarter: 2012Q1

REPORT INFORMATION
  Report Type: 
  Country: None (occurrence: None)
  Receive Date: 20120128
  Receipt Date: 20110626
  Transmission Date: 20120608
  Serious: No
  Sender: FDA-Public Use
  Company Number: US-ABBOTT-11P-163-0834526-00

PATIENT
  Age: 52 Year
  Sex: Female

DRUGS (5)
  1. HUMIRA [Suspect]
     Indication: PSORIASIS
     Dates: start: 20110509
  2. VYTORIN [Concomitant]
     Indication: BLOOD CHOLESTEROL
     Dosage: 10/20 MG DAILY
  3. ZYRTEC [Concomitant]
     Indication: HYPERSENSITIVITY
     Dosage: AS REQUIRED DAILY
  4. ASPIRIN [Concomitant]
     Indication: PROPHYLAXIS
  5. COREG [Concomitant]
     Indication: BLOOD PRESSURE

REACTIONS (1)
  - INJECTION SITE PAIN [None]
